FAERS Safety Report 12680126 (Version 2)
Quarter: 2016Q4

REPORT INFORMATION
  Report Type: Spontaneous
  Country: BE (occurrence: BE)
  Receive Date: 20160824
  Receipt Date: 20161007
  Transmission Date: 20170207
  Serious: Yes (Hospitalization, Other)
  Sender: FDA-Public Use
  Company Number: BE-GLAXOSMITHKLINE-BE2016GSK120072

PATIENT
  Sex: Female

DRUGS (1)
  1. LAMICTAL [Suspect]
     Active Substance: LAMOTRIGINE
     Indication: PRODUCT USED FOR UNKNOWN INDICATION

REACTIONS (32)
  - Epilepsy [Recovered/Resolved]
  - Stomatitis [Recovered/Resolved]
  - Tremor [Recovered/Resolved]
  - Pain [Recovered/Resolved]
  - Alopecia [Recovered/Resolved]
  - White blood cell disorder [Unknown]
  - Bone disorder [Recovered/Resolved]
  - Pharyngeal ulceration [Unknown]
  - Nasal ulcer [Unknown]
  - Red blood cell abnormality [Unknown]
  - Rash erythematous [Recovered/Resolved]
  - Back pain [Unknown]
  - Dyskinesia [Recovered/Resolved]
  - Eye swelling [Unknown]
  - Muscle spasms [Unknown]
  - Fracture [Unknown]
  - Dry mouth [Recovered/Resolved]
  - Eye pruritus [Recovered/Resolved]
  - Eye discharge [Unknown]
  - Eyelid margin crusting [Unknown]
  - Chills [Unknown]
  - Genital ulceration [Recovered/Resolved]
  - Feeling abnormal [Unknown]
  - Parkinson^s disease [Recovered/Resolved]
  - Mouth ulceration [Unknown]
  - Arthralgia [Unknown]
  - Osteopenia [Unknown]
  - Osteoporosis [Unknown]
  - Upper limb fracture [Unknown]
  - Platelet disorder [Recovered/Resolved]
  - Hallucination [Recovered/Resolved]
  - Ocular hyperaemia [Unknown]
